FAERS Safety Report 4678319-9 (Version None)
Quarter: 2005Q2

REPORT INFORMATION
  Report Type: 
  Country: None (occurrence: None)
  Receive Date: 20050601
  Receipt Date: 20050519
  Transmission Date: 20051028
  Serious: Yes (Death)
  Sender: FDA-Public Use
  Company Number: US-KINGPHARMUSA00001-K200500678

PATIENT
  Sex: Female

DRUGS (2)
  1. SKELAXIN [Suspect]
     Dates: start: 20040101, end: 20040101
  2. MULTIPLE UNSPECIFED DRUGS [Suspect]
     Dates: end: 20040101

REACTIONS (2)
  - INTENTIONAL MISUSE [None]
  - MULTIPLE DRUG OVERDOSE [None]
